FAERS Safety Report 11908612 (Version 1)
Quarter: 2016Q1

REPORT INFORMATION
  Report Type: Spontaneous
  Country: US (occurrence: US)
  Receive Date: 20160111
  Receipt Date: 20160111
  Transmission Date: 20160526
  Serious: No
  Sender: FDA-Public Use
  Company Number: US-AMNEAL PHARMACEUTICALS-2015AMN00158

PATIENT
  Sex: Male

DRUGS (2)
  1. METAXALONE. [Suspect]
     Active Substance: METAXALONE
     Indication: MUSCLE SPASMS
  2. METAXALONE. [Suspect]
     Active Substance: METAXALONE
     Indication: MYALGIA
     Route: 048

REACTIONS (2)
  - Oral administration complication [Recovered/Resolved]
  - Dysphagia [Recovered/Resolved]
